FAERS Safety Report 4817966-8 (Version None)
Quarter: 2005Q4

REPORT INFORMATION
  Report Type: 
  Country: None (occurrence: None)
  Receive Date: 20051101
  Receipt Date: 20051101
  Transmission Date: 20060501
  Serious: Yes (Hospitalization)
  Sender: FDA-Public Use
  Company Number: None

PATIENT
  Age: 58 Year
  Sex: Male
  Weight: 78.9259 kg

DRUGS (26)
  1. FUROSEMIDE [Suspect]
     Indication: HYPERTENSION
  2. LISINOPRIL [Suspect]
     Indication: HYPERTENSION
  3. METOPROLOL 25MG BID [Suspect]
     Indication: ANGINA PECTORIS
  4. METOPROLOL 25MG BID [Suspect]
     Indication: DIABETES MELLITUS
  5. METOPROLOL 25MG BID [Suspect]
     Indication: HYPERTENSION
  6. ACCU-CHECK COMFORT CV [Concomitant]
  7. ALCOHOL PREP [Concomitant]
  8. AMMONIUM LACTATE [Concomitant]
  9. BACLOFEN [Concomitant]
  10. BUPROPION HCL [Concomitant]
  11. CLOTRIMAZOLE [Concomitant]
  12. CYANOCOBALAMIN [Concomitant]
  13. DOXEPIN HCL [Concomitant]
  14. FOLIC ACID [Concomitant]
  15. FUROSEMIDE [Concomitant]
  16. GABAPENTIN [Concomitant]
  17. HYDROCODONE BITARTRATE + ACETAMINOPHEN [Concomitant]
  18. HUMULIN N [Concomitant]
  19. INSULIN SYRG [Concomitant]
  20. LISINOPRIL [Concomitant]
  21. METOPROLOL [Concomitant]
  22. OMEPRAZOLE [Concomitant]
  23. POTASSIUM CHLORIDE [Concomitant]
  24. SIMVASTATIN [Concomitant]
  25. TRAZODONE HCL [Concomitant]
  26. WARFARIN [Concomitant]

REACTIONS (2)
  - DIZZINESS [None]
  - ORTHOSTATIC HYPOTENSION [None]
